FAERS Safety Report 4432901-2 (Version None)
Quarter: 2004Q3

REPORT INFORMATION
  Report Type: 
  Country: None (occurrence: None)
  Receive Date: 20040823
  Receipt Date: 20040806
  Transmission Date: 20050211
  Serious: Yes (Disabling)
  Sender: FDA-Public Use
  Company Number: 2004SE04541

PATIENT
  Age: 47 Year
  Sex: Female
  Weight: 65 kg

DRUGS (3)
  1. NAROPIN [Suspect]
     Indication: ANALGESIC THERAPY
     Dosage: 12 MG / HR ED
     Route: 008
     Dates: start: 20040802, end: 20040803
  2. NAROPIN [Suspect]
     Indication: HIP ARTHROPLASTY
     Dosage: 12 MG / HR ED
     Route: 008
     Dates: start: 20040802, end: 20040803
  3. FENTANYL [Concomitant]

REACTIONS (1)
  - PERONEAL NERVE PALSY POSTOPERATIVE [None]
